FAERS Safety Report 12242262 (Version 3)
Quarter: 2016Q2

REPORT INFORMATION
  Report Type: Spontaneous
  Country: CH (occurrence: PL)
  Receive Date: 20160406
  Receipt Date: 20160627
  Transmission Date: 20160815
  Serious: Yes (Other)
  Sender: FDA-Public Use
  Company Number: CH-LPDUSPRD-20160283

PATIENT
  Age: 19 Year
  Sex: Female
  Weight: 70 kg

DRUGS (5)
  1. ACIDUM [Concomitant]
     Dosage: 15 MG (15 MG, 1 IN 1 D)
     Route: 048
     Dates: start: 201507
  2. HEPARIN [Concomitant]
     Active Substance: HEPARIN SODIUM
     Dosage: SEE NARRATIVE
     Route: 065
  3. VENOFER [Suspect]
     Active Substance: IRON SUCROSE
     Dosage: 100 MG, 1 IN 1 WEEK
     Route: 065
     Dates: start: 20150708
  4. NEORECORMON [Concomitant]
     Active Substance: ERYTHROPOIETIN
     Dosage: 8,000 IU, 1 IN 1 WEEK
     Route: 065
  5. AMLODIPINE [Concomitant]
     Active Substance: AMLODIPINE BESYLATE
     Dosage: 5 MG (5 MG, 1 IN 1 D)
     Route: 048
     Dates: start: 201504

REACTIONS (5)
  - Abortion induced [Unknown]
  - Oligohydramnios [Unknown]
  - Exposure during pregnancy [Recovered/Resolved]
  - Fluid overload [Unknown]
  - Premature delivery [Unknown]

NARRATIVE: CASE EVENT DATE: 20151223
